FAERS Safety Report 4313669-7 (Version None)
Quarter: 2004Q1

REPORT INFORMATION
  Report Type: 
  Country: None (occurrence: None)
  Receive Date: 20040305
  Receipt Date: 20040301
  Transmission Date: 20041129
  Serious: No
  Sender: FDA-Public Use
  Company Number: 2004UW03708

PATIENT
  Age: 75 Year
  Sex: Female
  Weight: 63.5036 kg

DRUGS (2)
  1. FASLODEX [Suspect]
     Indication: BREAST CANCER
     Dosage: 250MG/5ML
     Dates: start: 20030801
  2. ACTONEL [Concomitant]

REACTIONS (2)
  - DEAFNESS TRANSITORY [None]
  - DEAFNESS UNILATERAL [None]
